FAERS Safety Report 8941626 (Version 3)
Quarter: 2013Q2

REPORT INFORMATION
  Report Type: Spontaneous
  Country: US (occurrence: US)
  Receive Date: 20121203
  Receipt Date: 20130521
  Transmission Date: 20140414
  Serious: Yes (Other)
  Sender: FDA-Public Use
  Company Number: US-PFIZER INC-2012301564

PATIENT
  Age: 48 Year
  Sex: Female
  Weight: 67.12 kg

DRUGS (22)
  1. PRISTIQ [Suspect]
     Indication: DEPRESSION
     Dosage: 50 MG, 1X/DAY (HS)
     Route: 048
     Dates: start: 20090923
  2. FOLIC ACID [Concomitant]
     Indication: CROHN^S DISEASE
     Dosage: 2 MG, 1X/DAY (QAM)
     Route: 048
  3. MAGNESIUM OXIDE [Concomitant]
     Indication: CROHN^S DISEASE
     Dosage: 400 MG, 1X/DAY
  4. IMURAN [Concomitant]
     Indication: CROHN^S DISEASE
     Dosage: 50 MG, 3X/DAY
  5. LOMOTIL [Concomitant]
     Indication: DIARRHOEA
     Dosage: 2.5 MG, AS NEEDED
  6. LASIX [Concomitant]
     Dosage: 20 MG, AS NEEDED (QD)
  7. INDERAL [Concomitant]
     Indication: MIGRAINE
     Dosage: 40 MG, 3X/DAY
  8. ZOFRAN [Concomitant]
     Indication: NAUSEA
     Dosage: 4 MG, AS NEEDED
  9. SYNTHROID [Concomitant]
     Indication: THYROID DISORDER
     Dosage: 225 UG, 1X/DAY (200+25)
  10. NEURONTIN [Concomitant]
     Dosage: 600 MG, 3X/DAY
  11. KLONOPIN [Concomitant]
     Indication: PAIN
     Dosage: 1 MG, 2X/DAY
  12. CARAFATE [Concomitant]
     Dosage: 1 G, 3X/DAY
  13. QUETIAPINE [Concomitant]
     Dosage: UNK
  14. NASCOBAL [Concomitant]
     Dosage: 10 ML, AS NEEDED
  15. PERCOCET [Concomitant]
     Dosage: 10/325, AS NEEDED (1 OR 2 Q 4-6 H)
  16. FIORICET [Concomitant]
     Dosage: UNK, AS NEEDED (1 Q 4-6 HR)
  17. NASONEX [Concomitant]
     Dosage: 60 UG, 2X/DAY
     Route: 045
  18. NASONEX [Concomitant]
     Dosage: UNK, AS NEEDED
  19. TRICOR [Concomitant]
     Dosage: 160 MG, 1X/DAY
  20. MAG-OX [Concomitant]
     Dosage: 400 MG, 1X/DAY
  21. VITAMIN B12 [Concomitant]
     Dosage: 1 ML, MONTHLY
  22. FLECTOR [Concomitant]
     Indication: INFLAMMATION
     Dosage: UNK, 1 Q 12 HR

REACTIONS (5)
  - Joint dislocation [Unknown]
  - Haematuria [Unknown]
  - Anaemia [Unknown]
  - Blood cholesterol increased [Unknown]
  - Blood triglycerides increased [Unknown]
